FAERS Safety Report 14111029 (Version 1)
Quarter: 2017Q4

REPORT INFORMATION
  Report Type: Spontaneous
  Country: BR (occurrence: BR)
  Receive Date: 20171020
  Receipt Date: 20171020
  Transmission Date: 20180321
  Serious: Yes (Other)
  Sender: FDA-Public Use
  Company Number: BR-PFIZER INC-2017449140

PATIENT
  Sex: Female

DRUGS (1)
  1. DETRUSITOL [Suspect]
     Active Substance: TOLTERODINE TARTRATE
     Indication: ESCHERICHIA BACTERAEMIA
     Dosage: UNK

REACTIONS (11)
  - Memory impairment [Unknown]
  - Thrombosis [Unknown]
  - Product use in unapproved indication [Unknown]
  - Erythema [Unknown]
  - Limb asymmetry [Unknown]
  - Gastritis [Unknown]
  - Hypertension [Unknown]
  - Gait inability [Unknown]
  - Morbid thoughts [Unknown]
  - Peripheral swelling [Unknown]
  - Pain [Unknown]
